FAERS Safety Report 12060056 (Version 7)
Quarter: 2016Q3

REPORT INFORMATION
  Report Type: Spontaneous
  Country: US (occurrence: US)
  Receive Date: 20160210
  Receipt Date: 20160901
  Transmission Date: 20161109
  Serious: Yes (Hospitalization, Disabling, Other)
  Sender: FDA-Public Use
  Company Number: US-009507513-1112USA00806

PATIENT
  Sex: Female
  Weight: 62.2 kg

DRUGS (4)
  1. FOSAMAX [Suspect]
     Active Substance: ALENDRONATE SODIUM
     Indication: OSTEOPOROSIS
     Dosage: 70 MG, QW
     Route: 048
     Dates: start: 1995, end: 200804
  2. VITAMIN D [Concomitant]
     Active Substance: CHOLECALCIFEROL
     Indication: ROUTINE HEALTH MAINTENANCE
     Dosage: 1000 IU, QD
     Route: 065
     Dates: start: 1995
  3. ESTROGEN NOS [Concomitant]
     Active Substance: ESTROGENS
     Indication: PRODUCT USED FOR UNKNOWN INDICATION
     Dosage: UNK, UNKNOWN
     Route: 065
  4. CALCIUM (UNSPECIFIED) [Concomitant]
     Active Substance: CALCIUM
     Indication: PRODUCT USED FOR UNKNOWN INDICATION
     Dosage: 500 MG, QD
     Route: 065
     Dates: start: 1995

REACTIONS (63)
  - Fracture delayed union [Unknown]
  - Diastolic dysfunction [Unknown]
  - Pain [Unknown]
  - Hysterectomy [Unknown]
  - Gallbladder operation [Unknown]
  - Spinal operation [Unknown]
  - Low turnover osteopathy [Unknown]
  - Medical device removal [Unknown]
  - Osteoarthritis [Unknown]
  - Chills [Unknown]
  - Weight increased [Unknown]
  - Muscle spasms [Unknown]
  - Chest pain [Unknown]
  - Joint dislocation [Recovered/Resolved]
  - Joint dislocation [Recovered/Resolved]
  - Joint dislocation [Unknown]
  - Dementia [Not Recovered/Not Resolved]
  - Hernia [Unknown]
  - Abasia [Unknown]
  - Chronic obstructive pulmonary disease [Unknown]
  - Oedema peripheral [Unknown]
  - Fall [Unknown]
  - Neck surgery [Unknown]
  - Pulmonary embolism [Unknown]
  - Spinal laminectomy [Unknown]
  - Spinal laminectomy [Unknown]
  - Hypercholesterolaemia [Unknown]
  - Spinal pain [Unknown]
  - Device breakage [Unknown]
  - Fatigue [Unknown]
  - Cardiac murmur [Unknown]
  - Pulmonary hypertension [Unknown]
  - Brain injury [Unknown]
  - Memory impairment [Unknown]
  - Increased tendency to bruise [Unknown]
  - Abdominal distension [Unknown]
  - Fall [Unknown]
  - Cardiac arrest [Unknown]
  - Femur fracture [Unknown]
  - Femur fracture [Recovered/Resolved]
  - Hypoaesthesia [Unknown]
  - Temperature intolerance [Unknown]
  - Myalgia [Unknown]
  - Appendicectomy [Unknown]
  - Spinal fusion surgery [Unknown]
  - Gastrooesophageal reflux disease [Unknown]
  - Fall [Unknown]
  - Endoscopy upper gastrointestinal tract [Unknown]
  - Paraesthesia [Unknown]
  - Night sweats [Unknown]
  - Coronary artery disease [Unknown]
  - Constipation [Unknown]
  - Hypertension [Unknown]
  - Joint dislocation [Recovered/Resolved]
  - Fracture nonunion [Recovering/Resolving]
  - Oral surgery [Unknown]
  - Femur fracture [Unknown]
  - Depression [Unknown]
  - Muscular weakness [Unknown]
  - Heart sounds abnormal [Unknown]
  - Dysphagia [Unknown]
  - Asthenia [Unknown]
  - Post procedural haemorrhage [Recovered/Resolved]

NARRATIVE: CASE EVENT DATE: 1998
